FAERS Safety Report 7779716-5 (Version None)
Quarter: 2011Q3

REPORT INFORMATION
  Report Type: 
  Country: None (occurrence: None)
  Receive Date: 20110927
  Receipt Date: 20110922
  Transmission Date: 20111222
  Serious: Yes (Life-Threatening)
  Sender: FDA-Public Use
  Company Number: CA-PFIZER INC-2011139947

PATIENT
  Age: 64 Year
  Sex: Female

DRUGS (3)
  1. LYRICA [Suspect]
     Dosage: 225 MG, 2X/DAY
     Route: 048
     Dates: start: 20110101, end: 20110701
  2. LYRICA [Suspect]
     Indication: NEURALGIA
     Dosage: 225 MG, 2X/DAY
     Route: 048
     Dates: start: 20101201, end: 20110101
  3. ELAVIL [Concomitant]
     Indication: NEURALGIA
     Dosage: 25 MG, 1X/DAY AT BEDTIME
     Dates: start: 20101201

REACTIONS (3)
  - SOMNAMBULISM [None]
  - LIGAMENT SPRAIN [None]
  - FALL [None]
